FAERS Safety Report 9821050 (Version 1)
Quarter: 2014Q1

REPORT INFORMATION
  Report Type: Report from Study
  Country: US (occurrence: US)
  Receive Date: 20140116
  Receipt Date: 20140116
  Transmission Date: 20141002
  Serious: Yes (Hospitalization)
  Sender: FDA-Public Use
  Company Number: US-EXELIXIS-XL18414003875

PATIENT
  Age: 66 Year
  Sex: Male
  Weight: 82.9 kg

DRUGS (2)
  1. XL184 [Suspect]
     Indication: PROSTATE CANCER
     Dosage: 60 MG, QD
     Route: 048
     Dates: start: 20131230
  2. NORCO [Concomitant]

REACTIONS (2)
  - Tachycardia [Unknown]
  - Dehydration [Unknown]
